FAERS Safety Report 9323035 (Version 5)
Quarter: 2013Q4

REPORT INFORMATION
  Report Type: Report from Study
  Country: TW (occurrence: TW)
  Receive Date: 20130603
  Receipt Date: 20131107
  Transmission Date: 20140711
  Serious: Yes (Hospitalization)
  Sender: FDA-Public Use
  Company Number: ES-009507513-1305ESP016054

PATIENT
  Age: 80 Year
  Sex: Male
  Weight: 63 kg

DRUGS (10)
  1. DEXAMETHASONE [Suspect]
     Indication: PLASMA CELL MYELOMA
     Dosage: 20MG ORALLY ON DAYS ONE, TWO, FOUR, FIVE, EIGHT, NINE, 11 AND 12 EVERY 21 DAYS
     Route: 048
     Dates: start: 20130329, end: 20130329
  2. DEXAMETHASONE [Suspect]
     Dosage: UNK
     Route: 048
     Dates: start: 20130511
  3. BORTEZOMIB [Suspect]
     Indication: PLASMA CELL MYELOMA
     Dosage: 1.3 MG/M2 SUBCUTANEOUSLY ON DAYS ONE, FOUR, EIGHT AND 11 EVERY 21 DAYS
     Route: 058
     Dates: start: 20130329, end: 20130329
  4. BORTEZOMIB [Suspect]
     Dosage: 1.3 MG/M2 SUBCUTANEOUSLY ON DAYS ONE, FOUR, EIGHT AND 11 EVERY 21 DAYS
     Route: 058
     Dates: start: 20130426
  5. BORTEZOMIB [Suspect]
     Dosage: 1.0 MG/M2  SUBCUTANEOUSLY ON DAYS ONE, FOUR, EIGHT AND 11 EVERY 21 DAYS
     Route: 058
     Dates: start: 20130503
  6. BORTEZOMIB [Suspect]
     Dosage: UNK
     Route: 058
     Dates: start: 20100510
  7. SOLU-CORTEF [Concomitant]
     Indication: PROPHYLAXIS
     Dosage: UNK
     Dates: start: 20130510, end: 20130510
  8. DIPHENHYDRAMINE HYDROCHLORIDE [Concomitant]
     Dosage: UNK
     Dates: start: 20130510, end: 20130523
  9. DEXTROSE [Concomitant]
     Indication: NUTRITIONAL SUPPLEMENTATION
     Dosage: UNK
     Dates: start: 20130514, end: 20130517
  10. OSELTAMIVIR PHOSPHATE [Concomitant]
     Indication: ANTIVIRAL PROPHYLAXIS
     Dosage: UNK
     Dates: start: 20130514

REACTIONS (3)
  - Localised oedema [Recovered/Resolved]
  - Interstitial lung disease [Recovered/Resolved]
  - Platelet count decreased [Recovering/Resolving]
